FAERS Safety Report 15744523 (Version 2)
Quarter: 2019Q1

REPORT INFORMATION
  Report Type: Report from Study
  Country: GB (occurrence: GB)
  Receive Date: 20181220
  Receipt Date: 20190210
  Transmission Date: 20190417
  Serious: Yes (Hospitalization, Other)
  Sender: FDA-Public Use
  Company Number: PHHY2018GB187796

PATIENT
  Sex: Male

DRUGS (3)
  1. TRAMADOL. [Concomitant]
     Active Substance: TRAMADOL
     Indication: PRODUCT USED FOR UNKNOWN INDICATION
     Dosage: UNK
     Route: 065
  2. MORPHINE [Concomitant]
     Active Substance: MORPHINE
     Indication: PRODUCT USED FOR UNKNOWN INDICATION
     Dosage: UNK
     Route: 065
  3. COSENTYX [Suspect]
     Active Substance: SECUKINUMAB
     Indication: ANKYLOSING SPONDYLITIS
     Dosage: 150 MG, QMO
     Route: 058
     Dates: start: 20180711

REACTIONS (13)
  - Haemoptysis [Unknown]
  - Paraesthesia [Unknown]
  - Infection [Unknown]
  - Lower respiratory tract infection [Unknown]
  - Dysphagia [Unknown]
  - Renal disorder [Unknown]
  - Blood urine present [Unknown]
  - Tonsillitis [Unknown]
  - Spinal disorder [Unknown]
  - Candida infection [Unknown]
  - Feeding disorder [Unknown]
  - Pain [Unknown]
  - Ankylosing spondylitis [Unknown]
